FAERS Safety Report 12837977 (Version 2)
Quarter: 2016Q4

REPORT INFORMATION
  Report Type: Spontaneous
  Country: IT (occurrence: IT)
  Receive Date: 20161012
  Receipt Date: 20161024
  Transmission Date: 20170207
  Serious: Yes (Other)
  Sender: FDA-Public Use
  Company Number: IT-009507513-1610ITA002617

PATIENT
  Age: 61 Year
  Sex: Female

DRUGS (3)
  1. LAROXYL [Concomitant]
     Active Substance: AMITRIPTYLINE
  2. EUTIROX [Concomitant]
     Active Substance: LEVOTHYROXINE SODIUM
  3. SINEMET [Suspect]
     Active Substance: CARBIDOPA\LEVODOPA
     Dosage: 100MG+25 MG STRENGTH
     Route: 048
     Dates: start: 20161001

REACTIONS (1)
  - Hypertensive crisis [Not Recovered/Not Resolved]

NARRATIVE: CASE EVENT DATE: 20161001
